FAERS Safety Report 18639521 (Version 5)
Quarter: 2021Q2

REPORT INFORMATION
  Report Type: Report from Study
  Country: US (occurrence: US)
  Receive Date: 20201219
  Receipt Date: 20210510
  Transmission Date: 20210717
  Serious: No
  Sender: FDA-Public Use
  Company Number: NVSC2020US336925

PATIENT
  Sex: Male

DRUGS (2)
  1. COSENTYX [Suspect]
     Active Substance: SECUKINUMAB
     Indication: PSORIASIS
     Dosage: UNK
     Route: 065
  2. COSENTYX [Suspect]
     Active Substance: SECUKINUMAB
     Dosage: 300 MG, OTHER, ONCE A WEEK FOR 5 WEEKS AND THEN Q4 WEEKS
     Route: 058

REACTIONS (3)
  - COVID-19 [Recovered/Resolved]
  - Psoriasis [Recovering/Resolving]
  - Skin plaque [Recovering/Resolving]
